FAERS Safety Report 9202038 (Version 1)
Quarter: 2013Q1

REPORT INFORMATION
  Report Type: Spontaneous
  Country: AU (occurrence: None)
  Receive Date: 20130327
  Receipt Date: 20130327
  Transmission Date: 20140127
  Serious: Yes (Other)
  Sender: FDA-Public Use
  Company Number: 2013000068

PATIENT
  Age: 60 Year
  Sex: Female

DRUGS (5)
  1. ACEON (PERINDOPRIL ERBUMINE) TABLET [Suspect]
     Route: 048
  2. MYOCRISIN (SODIUM AUROTHIOMALATE) [Suspect]
     Route: 058
  3. ALDACTONE [Concomitant]
  4. LASIX (FUROSEMIDE) [Concomitant]
  5. PREDNISONE (PREDNISONE) [Concomitant]

REACTIONS (4)
  - Loss of consciousness [None]
  - Vasodilatation [None]
  - Drug interaction [None]
  - Incorrect route of drug administration [None]
